FAERS Safety Report 22158796 (Version 1)
Quarter: 2023Q1

REPORT INFORMATION
  Report Type: Other
  Country: US (occurrence: None)
  Receive Date: 20230331
  Receipt Date: 20230331
  Transmission Date: 20230417
  Serious: No
  Sender: FDA-Public Use
  Company Number: US-ROCHE-3321015

PATIENT
  Age: 64 Year
  Sex: Male

DRUGS (1)
  1. OCREVUS [Suspect]
     Active Substance: OCRELIZUMAB
     Indication: Relapsing multiple sclerosis
     Dosage: PATIENT LAST DATE OF TREATMENT: 11/MAR/2020, ANTICIPATED DATE OF TREATMENT: 18/SEP/2020?DISPENSE 300
     Route: 042

REACTIONS (1)
  - COVID-19 [Unknown]
